FAERS Safety Report 7737207-1 (Version None)
Quarter: 2011Q3

REPORT INFORMATION
  Report Type: 
  Country: None (occurrence: None)
  Receive Date: 20110902
  Receipt Date: 20110822
  Transmission Date: 20111222
  Serious: Yes (Death, Life-Threatening, Hospitalization)
  Sender: FDA-Public Use
  Company Number: 2011MA012383

PATIENT
  Age: 7 Month
  Sex: Male

DRUGS (5)
  1. DIGOXIN [Suspect]
     Indication: PRODUCT USED FOR UNKNOWN INDICATION
  2. CAPTOPRIL [Suspect]
     Indication: PRODUCT USED FOR UNKNOWN INDICATION
  3. FUROSEMIDE [Suspect]
     Indication: PRODUCT USED FOR UNKNOWN INDICATION
  4. PROPRANOLOL HCL [Suspect]
     Indication: CARDIAC FAILURE
     Dosage: 0.1 MG/KG, TID, GT
  5. SPIRONOLACTONE [Suspect]
     Indication: PRODUCT USED FOR UNKNOWN INDICATION

REACTIONS (23)
  - PULMONARY HYPERTENSION [None]
  - BLOOD CALCIUM DECREASED [None]
  - GASTROINTESTINAL DISORDER [None]
  - ENDOTOXAEMIA [None]
  - SEPSIS [None]
  - PULMONARY VASCULAR DISORDER [None]
  - CARDIAC FAILURE [None]
  - ESCHERICHIA TEST POSITIVE [None]
  - BRONCHOSPASM [None]
  - HISTIOCYTOSIS HAEMATOPHAGIC [None]
  - PYREXIA [None]
  - BLOOD UREA INCREASED [None]
  - WHITE BLOOD CELL COUNT INCREASED [None]
  - PROCALCITONIN INCREASED [None]
  - BLOOD CREATININE INCREASED [None]
  - BLOOD TRIGLYCERIDES INCREASED [None]
  - CONDITION AGGRAVATED [None]
  - PULMONARY OEDEMA [None]
  - GENERAL PHYSICAL HEALTH DETERIORATION [None]
  - SYSTEMIC INFLAMMATORY RESPONSE SYNDROME [None]
  - LYMPHOHISTIOCYTOSIS [None]
  - HEPATIC FAILURE [None]
  - RESPIRATORY FAILURE [None]
